FAERS Safety Report 22345111 (Version 1)
Quarter: 2023Q2

REPORT INFORMATION
  Report Type: Spontaneous
  Country: US (occurrence: None)
  Receive Date: 20230518
  Receipt Date: 20230518
  Transmission Date: 20230721
  Serious: No
  Sender: FDA-Public Use
  Company Number: None

PATIENT
  Age: 65 Year
  Sex: Female
  Weight: 67.59 kg

DRUGS (20)
  1. LENALIDOMIDE [Suspect]
     Active Substance: LENALIDOMIDE
     Dosage: FREQUENCY : DAILY;?
     Route: 048
     Dates: start: 202303
  2. ACYCLOVIR [Concomitant]
     Active Substance: ACYCLOVIR
  3. ATORVASTATIN [Concomitant]
     Active Substance: ATORVASTATIN
  4. MAGNESIUM [Concomitant]
     Active Substance: MAGNESIUM
  5. SENNA [Concomitant]
     Active Substance: SENNA LEAF\SENNOSIDES\SENNOSIDES A AND B
  6. VITAMIN B12 [Concomitant]
     Active Substance: CYANOCOBALAMIN
  7. VITAMIN C [Concomitant]
     Active Substance: ASCORBIC ACID
  8. VITAMINS [Concomitant]
     Active Substance: VITAMINS
  9. DIAZEPAM [Concomitant]
     Active Substance: DIAZEPAM
  10. ENOXAPARIN [Concomitant]
     Active Substance: ENOXAPARIN
  11. VITAMIN D3 [Concomitant]
     Active Substance: CHOLECALCIFEROL
  12. GABAPENTIN [Concomitant]
     Active Substance: GABAPENTIN
  13. LEVOFLOXACIN [Concomitant]
     Active Substance: LEVOFLOXACIN
  14. LEVOTHYROXINE [Concomitant]
     Active Substance: LEVOTHYROXINE
  15. LOVENOX [Concomitant]
     Active Substance: ENOXAPARIN SODIUM
  16. METFORMIN [Concomitant]
     Active Substance: METFORMIN HYDROCHLORIDE
  17. METHYLPREDNISOLONE [Concomitant]
     Active Substance: METHYLPREDNISOLONE
  18. PANTOPRAZOLE [Concomitant]
     Active Substance: PANTOPRAZOLE
  19. SUMATRIPTAN [Concomitant]
     Active Substance: SUMATRIPTAN
  20. TRAMADOL [Concomitant]
     Active Substance: TRAMADOL

REACTIONS (1)
  - Transplant [None]
